FAERS Safety Report 8577940-5 (Version None)
Quarter: 2012Q3

REPORT INFORMATION
  Report Type: 
  Country: None (occurrence: None)
  Receive Date: 20120808
  Receipt Date: 20120802
  Transmission Date: 20120928
  Serious: No
  Sender: FDA-Public Use
  Company Number: US-BIOGENIDEC-2012BI029263

PATIENT
  Sex: Female

DRUGS (5)
  1. GABAPENTIN [Concomitant]
     Indication: PARAESTHESIA
  2. AVONEX [Suspect]
     Indication: MULTIPLE SCLEROSIS
     Route: 030
     Dates: start: 20110122
  3. ALLEGRA [Concomitant]
     Indication: SEASONAL ALLERGY
  4. EPIDURAL STEROID INJECTION [Concomitant]
     Indication: INTERVERTEBRAL DISC PROTRUSION
     Dates: start: 20120701, end: 20120701
  5. PERCOCET [Concomitant]
     Indication: INTERVERTEBRAL DISC PROTRUSION
     Dates: start: 20120701, end: 20120101

REACTIONS (10)
  - HYPOTONIA [None]
  - PELVIC PAIN [None]
  - MUSCULOSKELETAL PAIN [None]
  - DEVICE BREAKAGE [None]
  - HYPOAESTHESIA [None]
  - BALANCE DISORDER [None]
  - MEMORY IMPAIRMENT [None]
  - INJECTION SITE PAIN [None]
  - INJECTION SITE MASS [None]
  - INFLUENZA LIKE ILLNESS [None]
